FAERS Safety Report 6315668-2 (Version None)
Quarter: 2009Q3

REPORT INFORMATION
  Report Type: 
  Country: None (occurrence: None)
  Receive Date: 20090818
  Receipt Date: 20090805
  Transmission Date: 20100115
  Serious: Yes (Death)
  Sender: FDA-Public Use
  Company Number: 2008AL011332

PATIENT
  Age: 58 Year
  Sex: Female

DRUGS (9)
  1. DIGOXIN [Suspect]
     Indication: CARDIAC DISORDER
     Dosage: 0.25MG, DAILY, PO
     Route: 048
  2. ESTRATEST H.S. [Concomitant]
  3. ARAVA [Concomitant]
  4. PREDNISONE TAB [Concomitant]
  5. HYDROXYCHLOROQUINE SULFATE [Concomitant]
  6. MELOXICAM [Concomitant]
  7. LEFLUNOMIDE [Concomitant]
  8. BENICAR [Concomitant]
  9. DICLOFENAC SODIUM [Concomitant]

REACTIONS (5)
  - ANXIETY [None]
  - DRUG TOXICITY [None]
  - INJURY [None]
  - PAIN [None]
  - UNEVALUABLE EVENT [None]
